FAERS Safety Report 7231622-0 (Version None)
Quarter: 2011Q1

REPORT INFORMATION
  Report Type: 
  Country: None (occurrence: None)
  Receive Date: 20110118
  Receipt Date: 20110113
  Transmission Date: 20110831
  Serious: Yes (Other)
  Sender: FDA-Public Use
  Company Number: US-PFIZER INC-2011009275

PATIENT
  Sex: Female
  Weight: 68 kg

DRUGS (4)
  1. FOLIC ACID [Concomitant]
     Dosage: UNK
  2. LIPITOR [Suspect]
     Indication: CARDIAC DISORDER
  3. METOPROLOL [Suspect]
     Indication: HYPERTENSION
     Dosage: UNK
  4. LIPITOR [Suspect]
     Indication: BLOOD CHOLESTEROL INCREASED
     Dosage: UNK
     Route: 048
     Dates: start: 19990101, end: 19990101

REACTIONS (4)
  - HYPERTENSION [None]
  - MALAISE [None]
  - FATIGUE [None]
  - MYOCARDIAL INFARCTION [None]
